FAERS Safety Report 5727270-1 (Version None)
Quarter: 2008Q2

REPORT INFORMATION
  Report Type: 
  Country: None (occurrence: None)
  Receive Date: 20080505
  Receipt Date: 20080505
  Transmission Date: 20081010
  Serious: No
  Sender: FDA-Public Use
  Company Number: None

PATIENT
  Sex: Female
  Weight: 69 kg

DRUGS (1)
  1. HEPARIN [Suspect]
     Indication: INTRAVENOUS CATHETER MANAGEMENT
     Dosage: 500 UNITS SASH IV
     Route: 042
     Dates: start: 20080328

REACTIONS (2)
  - CHILLS [None]
  - PYREXIA [None]
